FAERS Safety Report 25708836 (Version 1)
Quarter: 2025Q3

REPORT INFORMATION
  Report Type: Spontaneous
  Country: CN (occurrence: CN)
  Receive Date: 20250821
  Receipt Date: 20250821
  Transmission Date: 20251021
  Serious: Yes (Hospitalization, Other)
  Sender: JOHNSON AND JOHNSON
  Company Number: CN-JNJFOC-20250825547

PATIENT
  Age: 68 Year
  Sex: Female
  Weight: 65.5 kg

DRUGS (1)
  1. XARELTO [Suspect]
     Active Substance: RIVAROXABAN
     Indication: Anticoagulant therapy
     Dosage: 15 MG, BID
     Route: 048
     Dates: start: 20250809, end: 20250813

REACTIONS (3)
  - Drug eruption [Recovering/Resolving]
  - Rash erythematous [Recovering/Resolving]
  - Chest discomfort [Recovering/Resolving]

NARRATIVE: CASE EVENT DATE: 20250810
